FAERS Safety Report 16289016 (Version 2)
Quarter: 2021Q1

REPORT INFORMATION
  Report Type: Spontaneous
  Country: US (occurrence: US)
  Receive Date: 20190509
  Receipt Date: 20210301
  Transmission Date: 20210419
  Serious: Yes (Death, Other)
  Sender: FDA-Public Use
  Company Number: US-ASTRAZENECA-2019SE66895

PATIENT
  Sex: Female
  Weight: 72.6 kg

DRUGS (85)
  1. RENAPLEX [Concomitant]
     Indication: RENAL DISORDER
  2. PEPCID [Concomitant]
     Active Substance: FAMOTIDINE
  3. RANITIDINE. [Concomitant]
     Active Substance: RANITIDINE
  4. ROLAIDS [Concomitant]
     Active Substance: CALCIUM CARBONATE\MAGNESIUM HYDROXIDE
  5. MAALOX ANTACID [Concomitant]
     Active Substance: ALUMINUM HYDROXIDE\DIMETHICONE\MAGNESIUM HYDROXIDE
  6. CYCLOBENZAPRINE. [Concomitant]
     Active Substance: CYCLOBENZAPRINE
  7. RENVELA [Concomitant]
     Active Substance: SEVELAMER CARBONATE
  8. DOXYCYCLINE HYCLATE. [Concomitant]
     Active Substance: DOXYCYCLINE HYCLATE
  9. PREVACID [Suspect]
     Active Substance: LANSOPRAZOLE
     Indication: DYSPEPSIA
     Route: 065
     Dates: start: 1995, end: 2018
  10. ACYCLOVIR. [Concomitant]
     Active Substance: ACYCLOVIR
     Indication: VARICELLA
  11. CIPROFLOXACIN. [Concomitant]
     Active Substance: CIPROFLOXACIN
     Indication: ANTIBIOTIC LEVEL
  12. FLUOXETINE [Concomitant]
     Active Substance: FLUOXETINE HYDROCHLORIDE
  13. PROMETHAZINE HYDROCHLORIDE. [Concomitant]
     Active Substance: PROMETHAZINE HYDROCHLORIDE
  14. CLONAZEPAM. [Concomitant]
     Active Substance: CLONAZEPAM
  15. FLUOXETINE HYDROCHLORIDE. [Concomitant]
     Active Substance: FLUOXETINE HYDROCHLORIDE
  16. AMLODIPINE BESYLATE. [Concomitant]
     Active Substance: AMLODIPINE BESYLATE
  17. ADVAIR DISKUS [Concomitant]
     Active Substance: FLUTICASONE PROPIONATE\SALMETEROL XINAFOATE
  18. MORPHINE SULFATE. [Concomitant]
     Active Substance: MORPHINE SULFATE
  19. MAGNESIUM OXIDE. [Concomitant]
     Active Substance: MAGNESIUM OXIDE
  20. AMMONIUM ACETATE. [Concomitant]
     Active Substance: AMMONIUM ACETATE
  21. ASACOL [Concomitant]
     Active Substance: MESALAMINE
  22. PRILOSEC [Suspect]
     Active Substance: OMEPRAZOLE MAGNESIUM
     Indication: DYSPEPSIA
     Route: 048
     Dates: start: 1989, end: 2018
  23. SENSIPAR [Concomitant]
     Active Substance: CINACALCET HYDROCHLORIDE
     Indication: HYPERPARATHYROIDISM
  24. AMITRIPTYLIN [Concomitant]
     Active Substance: AMITRIPTYLINE
  25. ONDANSETRON HYDROCHLORIDE. [Concomitant]
     Active Substance: ONDANSETRON HYDROCHLORIDE
  26. CHOLESTYRAM [Concomitant]
     Active Substance: CHOLESTYRAMINE
  27. CLOTRIM/ BETA DIPROP [Concomitant]
  28. CLARITHROMYCIN. [Concomitant]
     Active Substance: CLARITHROMYCIN
  29. ABILIFY [Concomitant]
     Active Substance: ARIPIPRAZOLE
  30. AMOXICILLIN. [Concomitant]
     Active Substance: AMOXICILLIN
     Indication: ANTIBIOTIC LEVEL
  31. CALCIUM ACETATE. [Concomitant]
     Active Substance: CALCIUM ACETATE
     Indication: BLOOD PHOSPHORUS
  32. PROMETHAZINE [Concomitant]
     Active Substance: PROMETHAZINE HYDROCHLORIDE
     Indication: HYPERSENSITIVITY
  33. FLUCONAZOLE. [Concomitant]
     Active Substance: FLUCONAZOLE
  34. HYDROXYZINE HYDROCHLORIDE. [Concomitant]
     Active Substance: HYDROXYZINE HYDROCHLORIDE
  35. DIAZEPAM. [Concomitant]
     Active Substance: DIAZEPAM
  36. IPRATROPIUM/ ALBUTEROL [Concomitant]
  37. LOPERAMIDE [Concomitant]
     Active Substance: LOPERAMIDE
  38. MONTELUKAST [Concomitant]
     Active Substance: MONTELUKAST SODIUM
  39. SMZ/TMP [Concomitant]
     Active Substance: SULFAMETHOXAZOLE\TRIMETHOPRIM
  40. ZOLPIDEM [Concomitant]
     Active Substance: ZOLPIDEM TARTRATE
  41. ZYVOX [Concomitant]
     Active Substance: LINEZOLID
  42. CARAFATE [Concomitant]
     Active Substance: SUCRALFATE
  43. ACYCLOVIR. [Concomitant]
     Active Substance: ACYCLOVIR
     Indication: INFECTION
  44. VENTOLIN HFA [Concomitant]
     Active Substance: ALBUTEROL SULFATE
  45. ONDANSETRON [Concomitant]
     Active Substance: ONDANSETRON
  46. NYSTATIN. [Concomitant]
     Active Substance: NYSTATIN
  47. NEXIUM [Suspect]
     Active Substance: ESOMEPRAZOLE MAGNESIUM
     Indication: DYSPEPSIA
     Route: 048
     Dates: start: 2007, end: 2019
  48. DEXILANT [Suspect]
     Active Substance: DEXLANSOPRAZOLE
     Indication: DYSPEPSIA
     Route: 065
     Dates: start: 2018, end: 2020
  49. HYDROXYZINE [Concomitant]
     Active Substance: HYDROXYZINE HYDROCHLORIDE
     Indication: MULTIPLE ALLERGIES
  50. LOMOTIL [Concomitant]
     Active Substance: ATROPINE SULFATE\DIPHENOXYLATE HYDROCHLORIDE
     Indication: DIARRHOEA
  51. PERCOCET [Concomitant]
     Active Substance: ACETAMINOPHEN\OXYCODONE HYDROCHLORIDE
     Indication: PAIN
  52. RENAPLEX [Concomitant]
     Indication: HYPOVITAMINOSIS
  53. VITAMIN D [Concomitant]
     Active Substance: VITAMIN D NOS
     Indication: VITAL SIGNS MEASUREMENT
  54. METOPROLOL TARTRATE. [Concomitant]
     Active Substance: METOPROLOL TARTRATE
  55. BUSPIRONE HYDROCHLORIDE. [Concomitant]
     Active Substance: BUSPIRONE HYDROCHLORIDE
  56. LYRICA [Concomitant]
     Active Substance: PREGABALIN
  57. LIDOCAINE. [Concomitant]
     Active Substance: LIDOCAINE
  58. PREDNISONE. [Concomitant]
     Active Substance: PREDNISONE
  59. CLOTRIMAZOLE. [Concomitant]
     Active Substance: CLOTRIMAZOLE
  60. METHOCARBAM [Concomitant]
     Active Substance: METHOCARBAMOL
  61. DIPHENOXYLATE [Concomitant]
     Active Substance: DIPHENOXYLATE
  62. BENZONATATE. [Concomitant]
     Active Substance: BENZONATATE
  63. AMOXICILLIN. [Concomitant]
     Active Substance: AMOXICILLIN
     Indication: INFECTION
  64. AZITHROMYCIN ANHYDROUS. [Concomitant]
     Active Substance: AZITHROMYCIN ANHYDROUS
     Indication: INFECTION
  65. AZITHROMYCIN ANHYDROUS. [Concomitant]
     Active Substance: AZITHROMYCIN ANHYDROUS
     Indication: ANTIBIOTIC LEVEL
  66. CIPROFLOXACIN. [Concomitant]
     Active Substance: CIPROFLOXACIN
     Indication: INFECTION
  67. CALCITRIOL. [Concomitant]
     Active Substance: CALCITRIOL
     Indication: HYPERPARATHYROIDISM
  68. DIPHEN/ATROP [Concomitant]
     Active Substance: ATROPINE SULFATE\DIPHENOXYLATE
  69. WARFARIN [Concomitant]
     Active Substance: WARFARIN
  70. METHYLPREDNISOLONE. [Concomitant]
     Active Substance: METHYLPREDNISOLONE
  71. AMOX?CLAV [Concomitant]
     Active Substance: AMOXICILLIN\CLAVULANATE POTASSIUM
  72. FLONASE [Concomitant]
     Active Substance: FLUTICASONE PROPIONATE
  73. PAROXETINE. [Concomitant]
     Active Substance: PAROXETINE
  74. PROTONIX [Suspect]
     Active Substance: PANTOPRAZOLE SODIUM
     Indication: DYSPEPSIA
     Route: 065
     Dates: start: 2007, end: 2019
  75. METOPROLOL. [Concomitant]
     Active Substance: METOPROLOL
     Indication: HYPERTENSION
  76. TUMS [Concomitant]
     Active Substance: CALCIUM CARBONATE
  77. COLESTIPOL HYDROCHLORIDE. [Concomitant]
     Active Substance: COLESTIPOL HYDROCHLORIDE
  78. POLYETHYLENE GLYCOL [Concomitant]
     Active Substance: POLYETHYLENE GLYCOLS
  79. CETIRIZINE [Concomitant]
     Active Substance: CETIRIZINE HYDROCHLORIDE
  80. AMITIZA [Concomitant]
     Active Substance: LUBIPROSTONE
  81. HYDROMORPHONE [Concomitant]
     Active Substance: HYDROMORPHONE
  82. ATENOLOL. [Concomitant]
     Active Substance: ATENOLOL
  83. CHERATUSSIN [Concomitant]
     Active Substance: AMMONIUM CHLORIDE\DEXTROMETHORPHAN\SODIUM CITRATE
  84. TAMIFLU [Concomitant]
     Active Substance: OSELTAMIVIR PHOSPHATE
  85. CITALOPRAM [Concomitant]
     Active Substance: CITALOPRAM HYDROBROMIDE

REACTIONS (4)
  - End stage renal disease [Unknown]
  - Acute kidney injury [Unknown]
  - Death [Fatal]
  - Chronic kidney disease [Unknown]
